FAERS Safety Report 5812933-X (Version None)
Quarter: 2008Q3

REPORT INFORMATION
  Report Type: 
  Country: None (occurrence: None)
  Receive Date: 20080717
  Receipt Date: 20070731
  Transmission Date: 20090109
  Serious: No
  Sender: FDA-Public Use
  Company Number: A0667039A

PATIENT
  Age: 30 Year
  Sex: Male

DRUGS (1)
  1. NICORETTE (MINT) [Suspect]
     Indication: DRUG USE FOR UNKNOWN INDICATION
     Dates: end: 20070729

REACTIONS (2)
  - MALAISE [None]
  - VOMITING [None]
